FAERS Safety Report 9220222 (Version 1)
Quarter: 2013Q2

REPORT INFORMATION
  Report Type: Spontaneous
  Country: GB (occurrence: GB)
  Receive Date: 20130409
  Receipt Date: 20130409
  Transmission Date: 20140414
  Serious: Yes (Other)
  Sender: FDA-Public Use
  Company Number: GB-ROCHE-1211688

PATIENT
  Sex: Male

DRUGS (3)
  1. PEG-INTERFERON ALFA 2A [Suspect]
     Indication: HEPATITIS C
     Route: 065
  2. RIBAVIRIN [Suspect]
     Indication: HEPATITIS C
     Route: 065
  3. INCIVO [Suspect]
     Indication: HEPATITIS C
     Route: 065

REACTIONS (6)
  - Anaemia [Recovered/Resolved]
  - Decreased appetite [Recovered/Resolved]
  - Cognitive disorder [Recovering/Resolving]
  - Depression [Recovering/Resolving]
  - Gastrointestinal disorder [Recovered/Resolved]
  - Insomnia [Recovering/Resolving]
